FAERS Safety Report 8085547 (Version 3)
Quarter: 2013Q2

REPORT INFORMATION
  Report Type: Spontaneous
  Country: JP (occurrence: None)
  Receive Date: 20110722
  Receipt Date: 20130405
  Transmission Date: 20140414
  Serious: Yes (Hospitalization)
  Sender: FDA-Public Use
  Company Number: TCI2011A03972

PATIENT
  Age: 77 Year
  Sex: Female

DRUGS (8)
  1. METACT COMBINATION TABLETS LD (PIOGLITAZONE HYDROCHLORIDE, METFORMIN HYDROCHLORIDE) [Suspect]
     Indication: TYPE 2 DIABETES MELLITUS
     Dosage: 1 TAB. (1 TAB., 1 IN 1 D) PER ORAL
     Route: 048
     Dates: start: 20110121, end: 20110304
  2. ACTOS [Suspect]
     Indication: TYPE 2 DIABETES MELLITUS
     Route: 048
     Dates: start: 20101129, end: 20101216
  3. VICTOZA [Suspect]
     Indication: TYPE 2 DIABETES MELLITUS
     Route: 058
     Dates: start: 201101
  4. AMARYL [Concomitant]
  5. METFORMIN HYDROCHLORIDE [Concomitant]
  6. RIFADIN [Concomitant]
  7. LEVOFLOXACIN [Concomitant]
  8. CLARITHROMYCIN [Concomitant]

REACTIONS (9)
  - PLEURAL EFFUSION [None]
  - DECREASED APPETITE [None]
  - HYPOGLYCAEMIA [None]
  - NAUSEA [None]
  - VOMITING [None]
  - OEDEMA PERIPHERAL [None]
  - HYPOPHAGIA [None]
  - DEHYDRATION [None]
  - HEART RATE INCREASED [None]
